FAERS Safety Report 10193910 (Version 1)
Quarter: 2014Q2

REPORT INFORMATION
  Report Type: Spontaneous
  Country: US (occurrence: US)
  Receive Date: 20140524
  Receipt Date: 20140524
  Transmission Date: 20141212
  Serious: No
  Sender: FDA-Public Use
  Company Number: US-SANOFI-AVENTIS-2013SA045762

PATIENT
  Sex: Female

DRUGS (1)
  1. LANTUS [Suspect]
     Dosage: THERAPY START DATE - ABOUT 2 MONTHS DOSE:16 UNIT(S)
     Route: 051

REACTIONS (1)
  - Feeling jittery [Unknown]
